FAERS Safety Report 4621550-9 (Version None)
Quarter: 2005Q1

REPORT INFORMATION
  Report Type: 
  Country: None (occurrence: None)
  Receive Date: 20050328
  Receipt Date: 20010412
  Transmission Date: 20050727
  Serious: Yes (Death)
  Sender: FDA-Public Use
  Company Number: 5723

PATIENT
  Age: 45 Year
  Sex: Female

DRUGS (1)
  1. ATRACURIUM BESYLATE [Suspect]
     Dosage: IV
     Route: 042

REACTIONS (2)
  - INTENTIONAL MISUSE [None]
  - MULTI-ORGAN DISORDER [None]
